FAERS Safety Report 8973148 (Version 1)
Quarter: 2012Q4

REPORT INFORMATION
  Report Type: 
  Country: US (occurrence: US)
  Receive Date: 20121219
  Receipt Date: 20121219
  Transmission Date: 20130627
  Serious: Yes (Other)
  Sender: FDA-Public Use
  Company Number: US-BAYER-2012-132197

PATIENT
  Age: 58 Year
  Sex: Female

DRUGS (1)
  1. INTERFERON BETA - 1B [Suspect]
     Indication: MULTIPLE SCLEROSIS
     Dosage: 8 miu, QOD
     Route: 058
     Dates: start: 20120824

REACTIONS (6)
  - Convulsion [Recovered/Resolved]
  - Pain in extremity [Recovering/Resolving]
  - Injection site mass [Not Recovered/Not Resolved]
  - Unevaluable event [Recovered/Resolved]
  - Tremor [Recovered/Resolved]
  - Musculoskeletal stiffness [Recovering/Resolving]
